FAERS Safety Report 16427658 (Version 1)
Quarter: 2019Q2

REPORT INFORMATION
  Report Type: Report from Study
  Country: US (occurrence: US)
  Receive Date: 20190613
  Receipt Date: 20190613
  Transmission Date: 20190711
  Serious: Yes (Hospitalization)
  Sender: FDA-Public Use
  Company Number: US-PFIZER INC-2019078438

PATIENT
  Age: 54 Year
  Sex: Female

DRUGS (14)
  1. MELOXICAM. [Concomitant]
     Active Substance: MELOXICAM
     Dosage: 15 MG, 1X/DAY
  2. CYCLOBENZAPRINE. [Concomitant]
     Active Substance: CYCLOBENZAPRINE
     Dosage: 10 MG, AS NEEDED(1 TAB UPTO 3 XDAILY AS NEEDED )
  3. PRAVASTATIN. [Concomitant]
     Active Substance: PRAVASTATIN
     Dosage: 10 MG, DAILY
  4. METFORMIN [Concomitant]
     Active Substance: METFORMIN HYDROCHLORIDE
     Dosage: 500 MG, 2X/DAY (AM-PM)
  5. ASPRIN [Concomitant]
     Active Substance: ASPIRIN
     Dosage: 81 MG, DAILY
  6. XELJANZ XR [Suspect]
     Active Substance: TOFACITINIB CITRATE
     Dosage: 11 MG, DAILY
     Route: 048
     Dates: end: 20190205
  7. PREDNISONE. [Concomitant]
     Active Substance: PREDNISONE
     Dosage: 5 MG, DAILY
  8. TRULICITY [Concomitant]
     Active Substance: DULAGLUTIDE
     Dosage: UNK (75/0.5)
  9. LISINOPRIL. [Concomitant]
     Active Substance: LISINOPRIL
     Dosage: 5 MG, DAILY
  10. ALENDRONATE [Concomitant]
     Active Substance: ALENDRONATE SODIUM
     Dosage: 70 MG, WEEKLY
  11. JARDIANCE [Concomitant]
     Active Substance: EMPAGLIFLOZIN
     Dosage: 10 MG, DAILY
  12. XELJANZ XR [Suspect]
     Active Substance: TOFACITINIB CITRATE
     Indication: RHEUMATOID ARTHRITIS
     Dosage: 11 MG, 1X/DAY
     Route: 048
     Dates: start: 201901
  13. TYLENOL WITH CODEIN #4 [Concomitant]
     Dosage: UNK UNK, AS NEEDED (UP TO 4X) (CODEINE PHOSPHATE 60MG, PARACETAMOL 300MG )
  14. SULFASALAZINE. [Concomitant]
     Active Substance: SULFASALAZINE
     Dosage: 1000 MG, 2X/DAY (AM-PM)

REACTIONS (6)
  - Sinus congestion [Unknown]
  - Eye pruritus [Unknown]
  - Epistaxis [Unknown]
  - Nasal dryness [Unknown]
  - Sinus disorder [Not Recovered/Not Resolved]
  - Influenza [Recovered/Resolved]

NARRATIVE: CASE EVENT DATE: 20190206
